FAERS Safety Report 5032030-3 (Version None)
Quarter: 2006Q2

REPORT INFORMATION
  Report Type: 
  Country: None (occurrence: None)
  Receive Date: 20060616
  Receipt Date: 20060606
  Transmission Date: 20061013
  Serious: Yes (Other)
  Sender: FDA-Public Use
  Company Number: B0427462A

PATIENT
  Age: 15 Year
  Sex: Male

DRUGS (4)
  1. LAMICTAL [Suspect]
  2. VALPROATE SODIUM [Suspect]
  3. TOPIRAMATE [Suspect]
  4. CLOBAZAM (CLOBAZAM) [Suspect]

REACTIONS (3)
  - DRUG INEFFECTIVE [None]
  - PETIT MAL EPILEPSY [None]
  - TONIC CONVULSION [None]
